FAERS Safety Report 8607455 (Version 4)
Quarter: 2014Q2

REPORT INFORMATION
  Report Type: Spontaneous
  Country: US (occurrence: US)
  Receive Date: 20120611
  Receipt Date: 20140416
  Transmission Date: 20141212
  Serious: Yes (Disabling)
  Sender: FDA-Public Use
  Company Number: US-ASTRAZENECA-2012SE35235

PATIENT
  Age: 45 Year
  Sex: Female

DRUGS (25)
  1. NEXIUM [Suspect]
     Indication: GASTROOESOPHAGEAL REFLUX DISEASE
     Dosage: 40 MG, ONE TO TWO TIMES PER DAY
     Route: 048
  2. NEXIUM [Suspect]
     Indication: GASTROOESOPHAGEAL REFLUX DISEASE
     Route: 048
     Dates: start: 20040821
  3. NEXIUM [Suspect]
     Indication: GASTROOESOPHAGEAL REFLUX DISEASE
     Route: 048
     Dates: start: 20050906
  4. DIGOXIN [Concomitant]
     Indication: CARDIAC DISORDER
  5. ATIVAN [Concomitant]
     Indication: PAIN
  6. MELOXICAM [Concomitant]
     Indication: PAIN
  7. VIT A [Concomitant]
  8. VIT B 17 [Concomitant]
  9. SINGULAIR [Concomitant]
     Dosage: DAILY
     Dates: start: 20040821
  10. PREMARIN [Concomitant]
     Route: 048
     Dates: start: 20040821
  11. LUNESTA [Concomitant]
     Dates: start: 20040821
  12. PREDNISONE [Concomitant]
     Route: 048
     Dates: start: 20061121
  13. TRAZADONE [Concomitant]
     Route: 048
     Dates: start: 20050510
  14. FLEXERIL [Concomitant]
     Route: 048
     Dates: start: 20060223
  15. CYMBALTA [Concomitant]
     Route: 048
     Dates: start: 20060126
  16. OXYCODONE/ APAP [Concomitant]
     Dosage: 5-325 MG
     Route: 048
     Dates: start: 20060126
  17. PROMETHAZINE [Concomitant]
     Route: 048
     Dates: start: 20061229
  18. HISTEX [Concomitant]
     Route: 048
     Dates: start: 20090306
  19. FERROUS SULPHATE [Concomitant]
     Route: 048
     Dates: start: 20071228
  20. METHYLPREDNISOLONE [Concomitant]
     Route: 048
     Dates: start: 20081024
  21. MECLIZINE [Concomitant]
     Route: 048
     Dates: start: 20100312
  22. PRIMIDONE [Concomitant]
     Dosage: 250 MG HALF
     Route: 048
     Dates: start: 20110513
  23. POTASSIUM CL [Concomitant]
     Route: 048
     Dates: start: 20110215
  24. FLUOXETINE [Concomitant]
     Route: 048
     Dates: start: 20050510
  25. LYRICA [Concomitant]
     Route: 048
     Dates: start: 20060126

REACTIONS (16)
  - Osteoporosis [Unknown]
  - Bipolar disorder [Unknown]
  - Gastrointestinal disorder [Unknown]
  - Bone density decreased [Unknown]
  - Multiple fractures [Unknown]
  - Stress fracture [Unknown]
  - Parkinson^s disease [Unknown]
  - Essential tremor [Unknown]
  - Gait disturbance [Unknown]
  - Arthritis [Unknown]
  - Atrophy [Unknown]
  - Cataract [Unknown]
  - Vitamin D deficiency [Unknown]
  - Osteoarthritis [Unknown]
  - Anxiety [Unknown]
  - Depression [Unknown]
